FAERS Safety Report 11331544 (Version 3)
Quarter: 2015Q4

REPORT INFORMATION
  Report Type: Spontaneous
  Country: US (occurrence: US)
  Receive Date: 20150803
  Receipt Date: 20151005
  Transmission Date: 20160304
  Serious: No
  Sender: FDA-Public Use
  Company Number: US-PFIZER INC-2015244955

PATIENT
  Age: 86 Year
  Sex: Male
  Weight: 77 kg

DRUGS (5)
  1. LANTUS [Concomitant]
     Active Substance: INSULIN GLARGINE
     Dosage: UNK, 2X/DAY (1 SHOT IN MORNING AND 1 AT NIGHT)
     Dates: start: 1990
  2. INSULIN [Concomitant]
     Active Substance: INSULIN NOS
     Dosage: UNK (3 SHOTS BEFORE MEAL)
     Dates: start: 1990
  3. NITROSTAT [Suspect]
     Active Substance: NITROGLYCERIN
     Indication: CHEST PAIN
     Dosage: 0.4 MG, AS NEEDED (4 5 TIMES DAILY)
     Dates: start: 2010
  4. HUMALOG [Concomitant]
     Active Substance: INSULIN LISPRO
     Dosage: UNK, DAILY (2 SHOTS EVERYDAY)
     Dates: start: 1990
  5. NITROGLYCERINE [Concomitant]
     Active Substance: NITROGLYCERIN
     Indication: CARDIAC DISORDER
     Dosage: 6.5 MG, EVERY 6 HRS
     Dates: start: 1990

REACTIONS (3)
  - Headache [Unknown]
  - Drug ineffective [Unknown]
  - Product physical consistency issue [Unknown]

NARRATIVE: CASE EVENT DATE: 201507
